FAERS Safety Report 9340319 (Version 3)
Quarter: 2013Q4

REPORT INFORMATION
  Report Type: Spontaneous
  Country: GB (occurrence: None)
  Receive Date: 20130605
  Receipt Date: 20131125
  Transmission Date: 20140711
  Serious: Yes (Other)
  Sender: FDA-Public Use
  Company Number: AUR-APL-2013-04538

PATIENT
  Age: 71 Year
  Sex: Female
  Weight: 69 kg

DRUGS (5)
  1. CLOPIDOGREL (CLOPIDOGREL) [Suspect]
     Indication: MYOCARDIAL ISCHAEMIA
     Dates: start: 20130515
  2. ASPIRIN (ACETYLSALICYCLIC ACID) [Concomitant]
  3. BISOPROLOL (BISOPROLOL) [Concomitant]
  4. CANDESARTAN (CANDESARTAN) [Concomitant]
  5. GLYCERYL TRINITRATE (GLYCERYL TRINITRATE) [Concomitant]

REACTIONS (2)
  - Petechiae [None]
  - Rash pruritic [None]
